FAERS Safety Report 8622013-6 (Version None)
Quarter: 2012Q3

REPORT INFORMATION
  Report Type: 
  Country: None (occurrence: None)
  Receive Date: 20120825
  Receipt Date: 20120820
  Transmission Date: 20120928
  Serious: No
  Sender: FDA-Public Use
  Company Number: US-B.I. PHARMACEUTICALS,INC./RIDGEFIELD-2012-BP-20276BP

PATIENT
  Sex: Female

DRUGS (15)
  1. SPIRIVA [Suspect]
     Indication: EMPHYSEMA
     Dosage: 18 MCG
     Route: 055
     Dates: start: 20070101
  2. COSOPT [Concomitant]
     Indication: GLAUCOMA
     Route: 031
     Dates: start: 20020101
  3. OMEPRAZOLE [Concomitant]
     Indication: GASTRIC ULCER
     Route: 048
     Dates: start: 20020101
  4. METHOTREXATE [Concomitant]
     Indication: RHEUMATOID ARTHRITIS
     Dosage: 10 MG
     Route: 048
     Dates: start: 20070101
  5. CALCIUM D [Concomitant]
     Indication: BONE DISORDER
     Dosage: 500 MG
     Route: 048
     Dates: start: 19920101
  6. METFORMIN HCL [Concomitant]
     Indication: DIABETES MELLITUS
     Dosage: 2000 MG
     Route: 048
     Dates: start: 20070101
  7. HUMIRA [Concomitant]
     Indication: RHEUMATOID ARTHRITIS
     Route: 058
     Dates: start: 20020101
  8. COMBIVENT [Concomitant]
     Indication: EMPHYSEMA
     Route: 055
     Dates: start: 20120701
  9. ENALAPRIL MALEATE [Concomitant]
     Indication: HYPERTENSION
     Dosage: 10 MG
     Route: 048
     Dates: start: 20070101
  10. FOLIC ACID [Concomitant]
     Dosage: 1 MG
     Route: 048
     Dates: start: 20070101
  11. SPIRIVA [Suspect]
     Route: 048
     Dates: start: 20120601, end: 20120601
  12. ULTRACET [Concomitant]
     Indication: BACK PAIN
     Dosage: 325 MG
     Route: 048
  13. GLIPIZIDE [Concomitant]
     Indication: DIABETES MELLITUS
     Dosage: 5 MG
     Route: 048
     Dates: start: 20110801
  14. PRAVASTATIN [Concomitant]
     Indication: BLOOD CHOLESTEROL INCREASED
     Dosage: 10 MG
     Route: 048
     Dates: start: 20070101
  15. ACELOVIR [Concomitant]
     Indication: HERPES VIRUS INFECTION
     Dosage: 400 MG
     Route: 048
     Dates: start: 20070101

REACTIONS (2)
  - INCORRECT ROUTE OF DRUG ADMINISTRATION [None]
  - CYSTITIS [None]
